FAERS Safety Report 18223783 (Version 1)
Quarter: 2020Q3

REPORT INFORMATION
  Report Type: Spontaneous
  Country: IT (occurrence: IT)
  Receive Date: 20200902
  Receipt Date: 20200902
  Transmission Date: 20201103
  Serious: Yes (Other)
  Sender: FDA-Public Use
  Company Number: IT-SAMSUNG BIOEPIS-SB-2020-27379

PATIENT
  Age: 57 Year
  Sex: Male
  Weight: 65 kg

DRUGS (1)
  1. FLIXABI [Suspect]
     Active Substance: INFLIXIMAB
     Indication: SPONDYLITIS
     Route: 042
     Dates: start: 20190201, end: 20200612

REACTIONS (4)
  - Arthritis [Unknown]
  - Product use in unapproved indication [Unknown]
  - Drug ineffective [Unknown]
  - Product substitution issue [Unknown]

NARRATIVE: CASE EVENT DATE: 20200612
